FAERS Safety Report 10441111 (Version 3)
Quarter: 2015Q3

REPORT INFORMATION
  Report Type: Spontaneous
  Country: US (occurrence: US)
  Receive Date: 20140909
  Receipt Date: 20150706
  Transmission Date: 20151125
  Serious: Yes (Hospitalization)
  Sender: FDA-Public Use
  Company Number: US-BAYER-2014-133902

PATIENT
  Age: 46 Year
  Sex: Female
  Weight: 79.82 kg

DRUGS (34)
  1. YAZ [Suspect]
     Active Substance: DROSPIRENONE\ETHINYL ESTRADIOL
  2. MACROBID [Concomitant]
     Active Substance: NITROFURANTOIN\NITROFURANTOIN MONOHYDRATE
     Dosage: 100 HS
  3. ADVAIR HFA [Concomitant]
     Active Substance: FLUTICASONE PROPIONATE\SALMETEROL XINAFOATE
     Dosage: 500/50, ONE INHALATION TWICE A DAY
     Route: 045
  4. PROCARDIA XL [Concomitant]
     Active Substance: NIFEDIPINE
     Dosage: 30 MG, QD
  5. AMOXICILLIN. [Concomitant]
     Active Substance: AMOXICILLIN
     Indication: ANTIBIOTIC THERAPY
     Dosage: UNK
     Dates: start: 20100302, end: 20100315
  6. ATORVASTATIN [Concomitant]
     Active Substance: ATORVASTATIN
     Dosage: UNK
     Dates: start: 201006
  7. NITROFURANTOIN. [Concomitant]
     Active Substance: NITROFURANTOIN
     Dosage: UNK
     Dates: start: 20100128, end: 20100427
  8. HYDROCODONE/ACETAMINOPHEN [Concomitant]
     Active Substance: ACETAMINOPHEN\HYDROCODONE
     Indication: PAIN
     Dosage: 5/500 1-2 TABLETS EVERY 6 HOURS AS NEEDED
     Dates: start: 20100604, end: 20100609
  9. TENORMIN [Concomitant]
     Active Substance: ATENOLOL
     Dosage: 25 MG, UNK
  10. FISH OIL [Concomitant]
     Active Substance: FISH OIL
     Dosage: UNK
     Dates: start: 20100520, end: 20100609
  11. ALBUTEROL. [Concomitant]
     Active Substance: ALBUTEROL
     Indication: BRONCHITIS
     Dosage: 2 PUFF(S), Q4HR, PRN
     Route: 045
     Dates: start: 20100520, end: 20100606
  12. ZITHROMAX [Concomitant]
     Active Substance: AZITHROMYCIN DIHYDRATE
     Dosage: 250 MG, UNK
  13. DEXALONE [Concomitant]
     Dosage: 60 MG, QD
  14. LORTAB [Concomitant]
     Active Substance: ACETAMINOPHEN\HYDROCODONE BITARTRATE
     Route: 048
  15. NIFEDIAC CC [Concomitant]
     Active Substance: NIFEDIPINE
     Indication: VASOSPASM
     Dosage: 30 MG, UNK
  16. ZOCOR [Concomitant]
     Active Substance: SIMVASTATIN
  17. EXCEDRIN [ACETYLSALICYLIC ACID,CAFFEINE,PARACETAMOL,SALICYLAMIDE] [Concomitant]
     Active Substance: ACETAMINOPHEN\ASPIRIN\CAFFEINE
     Indication: MIGRAINE
     Dosage: UNK
     Dates: start: 1998
  18. LEVOTHYROXINE. [Concomitant]
     Active Substance: LEVOTHYROXINE
     Indication: THYROID DISORDER
     Dosage: UNK
     Dates: start: 20081104
  19. ASCORBIC ACID. [Concomitant]
     Active Substance: ASCORBIC ACID
     Dosage: UNK
     Dates: start: 201007
  20. ATENOLOL. [Concomitant]
     Active Substance: ATENOLOL
     Indication: HEART RATE IRREGULAR
     Dosage: 25 MG, QD
     Dates: start: 20090310
  21. ROBITUSSIN WITH CODEINE [Concomitant]
     Active Substance: CODEINE PHOSPHATE\GUAIFENESIN\PHENIRAMINE MALEATE
  22. SYNTHROID [Concomitant]
     Active Substance: LEVOTHYROXINE SODIUM
     Dosage: 125 ?G, BEFORE BREAKFAST
  23. ASPIRIN ENTERIC COATED K.P. [Concomitant]
     Active Substance: ASPIRIN
     Dosage: 325 MG, QD
     Route: 048
  24. NIACIN. [Concomitant]
     Active Substance: NIACIN
     Dosage: 500 MG, QD
     Route: 048
     Dates: start: 20100520, end: 20100609
  25. OMEGA 3 FISH OIL [Concomitant]
     Active Substance: FISH OIL\OMEGA-3 FATTY ACIDS
     Dosage: 1 DF, QD
     Route: 048
  26. NIFEDIAC CC [Concomitant]
     Active Substance: NIFEDIPINE
     Indication: VASOSPASM
     Dosage: 30 MG, QD
     Dates: start: 20100604, end: 20100609
  27. IBUPROFEN. [Concomitant]
     Active Substance: IBUPROFEN
  28. TYLOX [Concomitant]
     Active Substance: ACETAMINOPHEN\OXYCODONE HYDROCHLORIDE
  29. OCELLA [Suspect]
     Active Substance: DROSPIRENONE\ETHINYL ESTRADIOL
     Indication: PREMENSTRUAL SYNDROME
     Dosage: UNK
     Dates: start: 20100419, end: 20100604
  30. CHERATUSSIN [AMMONIUM CHLORIDE,DEXTROMETHORPHAN HYDROBROMIDE,SODIU [Concomitant]
     Indication: BRONCHITIS
     Dosage: 1-2 TEASPOONFUL EVERY 4-6 HOURS AS NEEDED
     Dates: start: 20100520, end: 20100526
  31. LOVASTATIN. [Concomitant]
     Active Substance: LOVASTATIN
     Dosage: 20 MG, QD
     Dates: start: 20100604, end: 20100609
  32. MEVACOR [Concomitant]
     Active Substance: LOVASTATIN
     Dosage: 20 MG, HS
     Route: 048
  33. PRILOSEC [Concomitant]
     Active Substance: OMEPRAZOLE MAGNESIUM
  34. AZITHROMYCIN [Concomitant]
     Active Substance: AZITHROMYCIN ANHYDROUS
     Indication: BRONCHITIS
     Dosage: 25 MG, BID
     Dates: start: 20100520, end: 20100525

REACTIONS (27)
  - Pain [Recovered/Resolved]
  - Hypoaesthesia oral [None]
  - Memory impairment [None]
  - Product use issue [None]
  - Activities of daily living impaired [None]
  - Peripheral artery thrombosis [None]
  - Emotional distress [None]
  - Asthenia [None]
  - Subclavian artery thrombosis [Recovered/Resolved]
  - Visual field defect [None]
  - Visual acuity reduced [None]
  - Hypoaesthesia [None]
  - Injury [Recovered/Resolved]
  - Embolic stroke [None]
  - Basilar artery thrombosis [None]
  - General physical health deterioration [Recovered/Resolved]
  - Visual impairment [None]
  - Coordination abnormal [None]
  - Migraine [None]
  - Paraesthesia [None]
  - Anxiety [None]
  - Skin discolouration [Recovered/Resolved]
  - Balance disorder [None]
  - Diplopia [None]
  - Dysphagia [None]
  - Pain [None]
  - Mental impairment [None]

NARRATIVE: CASE EVENT DATE: 201006
